FAERS Safety Report 17508712 (Version 1)
Quarter: 2020Q1

REPORT INFORMATION
  Report Type: Spontaneous
  Country: US (occurrence: US)
  Receive Date: 20200305
  Receipt Date: 20200305
  Transmission Date: 20200409
  Serious: Yes (Other)
  Sender: FDA-Public Use
  Company Number: None

PATIENT
  Age: 50 Year
  Sex: Female
  Weight: 66.6 kg

DRUGS (10)
  1. LAXATIVES [Concomitant]
     Active Substance: UNSPECIFIED INGREDIENT
  2. HYDROCHLORATHYAZIDE [Concomitant]
  3. XANAX [Concomitant]
     Active Substance: ALPRAZOLAM
  4. VERAPAMIL [Concomitant]
     Active Substance: VERAPAMIL HYDROCHLORIDE
  5. MELATONIN [Concomitant]
     Active Substance: MELATONIN
  6. MAGNESIUM [Concomitant]
     Active Substance: MAGNESIUM
  7. MULTIVITAMINS [Concomitant]
     Active Substance: VITAMINS
  8. AIMOVIG [Suspect]
     Active Substance: ERENUMAB-AOOE
     Indication: MIGRAINE
     Dosage: ?          QUANTITY:1 INJECTION(S);OTHER FREQUENCY:ONCE A MONTH;?
     Route: 030
     Dates: start: 20200226
  9. CBD OIL [Concomitant]
     Active Substance: CANNABIDIOL\HERBALS
  10. POTASSIUM [Concomitant]
     Active Substance: POTASSIUM

REACTIONS (14)
  - Fatigue [None]
  - Bone pain [None]
  - Dyspnoea [None]
  - Panic attack [None]
  - Typical aura without headache [None]
  - Nausea [None]
  - Feeling abnormal [None]
  - Weight decreased [None]
  - Decreased appetite [None]
  - Abdominal distension [None]
  - Asthenia [None]
  - Hypoaesthesia [None]
  - Basilar migraine [None]
  - Blood potassium decreased [None]

NARRATIVE: CASE EVENT DATE: 20200226
